FAERS Safety Report 13680115 (Version 1)
Quarter: 2017Q2

REPORT INFORMATION
  Report Type: Spontaneous
  Country: None (occurrence: DE)
  Receive Date: 20170622
  Receipt Date: 20170622
  Transmission Date: 20170830
  Serious: Yes (Other)
  Sender: FDA-Public Use
  Company Number: DE-MEDAC PHARMA, INC.-2022421

PATIENT
  Sex: Female

DRUGS (3)
  1. RITUXAN [Concomitant]
     Active Substance: RITUXIMAB
     Dates: start: 201409
  2. METEX (METHOTREXATE DISODIUM) [Suspect]
     Active Substance: METHOTREXATE SODIUM
     Indication: RHEUMATOID VASCULITIS
     Dates: start: 201409
  3. ARIXTRA [Concomitant]
     Active Substance: FONDAPARINUX SODIUM
     Dates: start: 201603

REACTIONS (18)
  - Pulmonary fibrosis [Unknown]
  - Cough [Recovering/Resolving]
  - Dyspnoea [Unknown]
  - Weight increased [Unknown]
  - Hypoaesthesia [Unknown]
  - Visual impairment [Unknown]
  - Vertigo [Recovering/Resolving]
  - Herpes zoster [Unknown]
  - Alopecia [Unknown]
  - Asthenia [Recovering/Resolving]
  - Myalgia [Unknown]
  - Rheumatoid nodule [Recovering/Resolving]
  - Muscular weakness [Unknown]
  - Vasculitis [Unknown]
  - Polyneuropathy [Unknown]
  - Arthralgia [Unknown]
  - Thrombosis [Unknown]
  - Muscle atrophy [Unknown]
